FAERS Safety Report 9139753 (Version 1)
Quarter: 2013Q1

REPORT INFORMATION
  Report Type: Spontaneous
  Country: US (occurrence: US)
  Receive Date: 20130305
  Receipt Date: 20130305
  Transmission Date: 20140127
  Serious: No
  Sender: FDA-Public Use
  Company Number: US-ENDO PHARMACEUTICALS INC.-SPLN20120062

PATIENT
  Sex: Male
  Weight: 62.5 kg

DRUGS (1)
  1. SUPPRELIN LA [Suspect]
     Indication: PRECOCIOUS PUBERTY
     Route: 058
     Dates: start: 20120220, end: 20120303

REACTIONS (4)
  - Wound infection staphylococcal [Unknown]
  - Implant site erythema [Unknown]
  - Implant site swelling [Unknown]
  - Implant site pain [Unknown]
